FAERS Safety Report 17023092 (Version 2)
Quarter: 2020Q1

REPORT INFORMATION
  Report Type: Spontaneous
  Country: US (occurrence: US)
  Receive Date: 20191112
  Receipt Date: 20200121
  Transmission Date: 20200409
  Serious: No
  Sender: FDA-Public Use
  Company Number: US-VIFOR (INTERNATIONAL) INC.-VIT-2019-11279

PATIENT
  Sex: Female

DRUGS (12)
  1. OMEPRAZOLE. [Concomitant]
     Active Substance: OMEPRAZOLE
  2. AMLODIPINE [Concomitant]
     Active Substance: AMLODIPINE BESYLATE
  3. SODIUM BICARBONATE. [Concomitant]
     Active Substance: SODIUM BICARBONATE
  4. PLACEBO [Concomitant]
     Active Substance: UNSPECIFIED INGREDIENT
  5. VELTASSA [Suspect]
     Active Substance: PATIROMER
     Indication: HYPERKALAEMIA
     Route: 048
     Dates: start: 20160401
  6. FUROSEMIDE. [Concomitant]
     Active Substance: FUROSEMIDE
  7. VITAMIN B12 [Concomitant]
     Active Substance: CYANOCOBALAMIN
  8. CALCITRIOL. [Concomitant]
     Active Substance: CALCITRIOL
  9. CARVEDILOL. [Concomitant]
     Active Substance: CARVEDILOL
  10. VITAMIN D3 [Concomitant]
     Active Substance: CHOLECALCIFEROL
  11. FISH OIL [Concomitant]
     Active Substance: FISH OIL
  12. MULTIVIT [Concomitant]
     Active Substance: VITAMINS

REACTIONS (2)
  - Decreased appetite [Not Recovered/Not Resolved]
  - Product dose omission [Not Recovered/Not Resolved]
